FAERS Safety Report 6095189-5 (Version None)
Quarter: 2009Q1

REPORT INFORMATION
  Report Type: 
  Country: None (occurrence: None)
  Receive Date: 20090227
  Receipt Date: 20080320
  Transmission Date: 20090719
  Serious: No
  Sender: FDA-Public Use
  Company Number: A0708406A

PATIENT
  Age: 27 Year
  Sex: Female

DRUGS (2)
  1. LAMICTAL [Suspect]
     Route: 048
  2. UNKNOWN [Concomitant]

REACTIONS (7)
  - CRYING [None]
  - DEPRESSED MOOD [None]
  - DRUG INEFFECTIVE [None]
  - INSOMNIA [None]
  - PARANOIA [None]
  - PRODUCT QUALITY ISSUE [None]
  - THERAPEUTIC RESPONSE DECREASED [None]
